FAERS Safety Report 16584204 (Version 1)
Quarter: 2019Q3

REPORT INFORMATION
  Report Type: Spontaneous
  Country: US (occurrence: US)
  Receive Date: 20190603
  Receipt Date: 20190603
  Transmission Date: 20191004
  Serious: Yes (Hospitalization, Other)
  Sender: FDA-Public Use
  Company Number: None

PATIENT
  Age: 56 Year
  Sex: Female

DRUGS (21)
  1. FLONASE [Concomitant]
     Active Substance: FLUTICASONE PROPIONATE
  2. NALOXONE [Concomitant]
     Active Substance: NALOXONE
  3. NORCO [Concomitant]
     Active Substance: ACETAMINOPHEN\HYDROCODONE BITARTRATE
  4. ADVAIR DISKUS [Concomitant]
     Active Substance: FLUTICASONE PROPIONATE\SALMETEROL XINAFOATE
  5. BENZONOLADE [Concomitant]
  6. APAP- CODEINE [Concomitant]
  7. OPSUMIT [Suspect]
     Active Substance: MACITENTAN
     Indication: PULMONARY ARTERIAL HYPERTENSION
     Route: 048
     Dates: start: 201511
  8. VELETRI [Concomitant]
     Active Substance: EPOPROSTENOL
  9. OLIMPIZIDE [Concomitant]
  10. METFORMIN [Concomitant]
     Active Substance: METFORMIN HYDROCHLORIDE
  11. CARVEDIOL [Concomitant]
     Active Substance: CARVEDILOL
  12. WARFARIN [Concomitant]
     Active Substance: WARFARIN
  13. HUMULIN N [Concomitant]
     Active Substance: INSULIN HUMAN
  14. ALBUTEROL HFA [Concomitant]
     Active Substance: ALBUTEROL SULFATE
  15. TORSEMIDE. [Concomitant]
     Active Substance: TORSEMIDE
  16. SPIRONOLACTONE. [Concomitant]
     Active Substance: SPIRONOLACTONE
  17. DIGOXIN. [Concomitant]
     Active Substance: DIGOXIN
  18. CITALOPRAM [Concomitant]
     Active Substance: CITALOPRAM HYDROBROMIDE
  19. PREGABALIN. [Concomitant]
     Active Substance: PREGABALIN
  20. LORAZEPAM. [Concomitant]
     Active Substance: LORAZEPAM
  21. ONDANSETRON [Concomitant]
     Active Substance: ONDANSETRON

REACTIONS (1)
  - Sepsis [None]

NARRATIVE: CASE EVENT DATE: 20190513
